FAERS Safety Report 21220466 (Version 14)
Quarter: 2023Q1

REPORT INFORMATION
  Report Type: Report from Study
  Country: CN (occurrence: CN)
  Receive Date: 20220817
  Receipt Date: 20230306
  Transmission Date: 20230417
  Serious: Yes (Life-Threatening, Hospitalization)
  Sender: FDA-Public Use
  Company Number: CN-NOVARTISPH-NVSC2022CN159723

PATIENT
  Age: 69 Year
  Sex: Male
  Weight: 60 kg

DRUGS (30)
  1. PEMETREXED [Suspect]
     Active Substance: PEMETREXED
     Indication: Non-small cell lung cancer metastatic
     Dosage: 800 MG
     Route: 042
     Dates: start: 20220427, end: 20220428
  2. PEMETREXED [Suspect]
     Active Substance: PEMETREXED
     Dosage: 800 MG
     Route: 042
     Dates: start: 20220518, end: 20220518
  3. PEMETREXED [Suspect]
     Active Substance: PEMETREXED
     Dosage: 800 MG
     Route: 042
     Dates: start: 20220607, end: 20220607
  4. PEMETREXED [Suspect]
     Active Substance: PEMETREXED
     Dosage: 800 MG
     Route: 042
     Dates: start: 20220628, end: 20220628
  5. PEMETREXED [Suspect]
     Active Substance: PEMETREXED
     Dosage: 650 MG
     Route: 042
     Dates: start: 20220719
  6. CARBOPLATIN [Suspect]
     Active Substance: CARBOPLATIN
     Indication: Non-small cell lung cancer metastatic
     Dosage: 450 MG
     Route: 042
     Dates: start: 20220427, end: 20220428
  7. CARBOPLATIN [Suspect]
     Active Substance: CARBOPLATIN
     Dosage: 430 MG
     Route: 042
     Dates: start: 20220518, end: 20220518
  8. CARBOPLATIN [Suspect]
     Active Substance: CARBOPLATIN
     Dosage: 450 MG
     Route: 042
     Dates: start: 20220607, end: 20220607
  9. CARBOPLATIN [Suspect]
     Active Substance: CARBOPLATIN
     Dosage: 480 MG
     Route: 042
     Dates: start: 20220628, end: 20220628
  10. CARBOPLATIN [Suspect]
     Active Substance: CARBOPLATIN
     Dosage: 360 MG
     Route: 042
     Dates: start: 20220719
  11. TISLELIZUMAB [Suspect]
     Active Substance: TISLELIZUMAB
     Indication: Non-small cell lung cancer metastatic
     Dosage: 200 MG
     Route: 042
     Dates: start: 20220427
  12. TISLELIZUMAB [Suspect]
     Active Substance: TISLELIZUMAB
     Dosage: 200 MG
     Route: 042
     Dates: start: 20220518, end: 20220518
  13. TISLELIZUMAB [Suspect]
     Active Substance: TISLELIZUMAB
     Dosage: 200 MG
     Route: 042
     Dates: start: 20220607, end: 20220607
  14. TISLELIZUMAB [Suspect]
     Active Substance: TISLELIZUMAB
     Dosage: 200 MG
     Route: 042
     Dates: start: 20220628, end: 20220628
  15. TISLELIZUMAB [Suspect]
     Active Substance: TISLELIZUMAB
     Dosage: 200 MG
     Route: 042
     Dates: start: 20220719
  16. OCIPERLIMAB [Suspect]
     Active Substance: OCIPERLIMAB
     Indication: Non-small cell lung cancer metastatic
     Dosage: 900 MG
     Route: 042
     Dates: start: 20220427
  17. OCIPERLIMAB [Suspect]
     Active Substance: OCIPERLIMAB
     Dosage: 900 MG
     Route: 042
     Dates: start: 20220518, end: 20220518
  18. OCIPERLIMAB [Suspect]
     Active Substance: OCIPERLIMAB
     Dosage: 900 MG
     Route: 042
     Dates: start: 20220607, end: 20220607
  19. OCIPERLIMAB [Suspect]
     Active Substance: OCIPERLIMAB
     Dosage: 900 MG
     Route: 042
     Dates: start: 20220628, end: 20220628
  20. OCIPERLIMAB [Suspect]
     Active Substance: OCIPERLIMAB
     Dosage: 900 MG
     Route: 042
     Dates: start: 20220719
  21. AMLODIPINE BESYLATE\ATORVASTATIN CALCIUM [Concomitant]
     Active Substance: AMLODIPINE BESYLATE\ATORVASTATIN CALCIUM
     Indication: Product used for unknown indication
     Dosage: UNK
     Route: 065
     Dates: start: 2019
  22. OMEPRAZOLE [Concomitant]
     Active Substance: OMEPRAZOLE
     Indication: Product used for unknown indication
     Dosage: UNK
     Route: 065
     Dates: start: 20220608, end: 20220705
  23. METOCLOPRAMIDE [Concomitant]
     Active Substance: METOCLOPRAMIDE
     Indication: Product used for unknown indication
     Dosage: UNK
     Route: 065
     Dates: start: 20220608, end: 20220705
  24. FOLIC ACID [Concomitant]
     Active Substance: FOLIC ACID
     Indication: Product used for unknown indication
     Dosage: UNK
     Route: 065
     Dates: start: 20220609
  25. DEXAMETHASONE SODIUM PHOSPHATE [Concomitant]
     Active Substance: DEXAMETHASONE SODIUM PHOSPHATE
     Indication: Product used for unknown indication
     Dosage: UNK
     Route: 065
     Dates: start: 20220628, end: 20220720
  26. THROMBOPOIETIN [Concomitant]
     Active Substance: THROMBOPOIETIN
     Indication: Product used for unknown indication
     Dosage: UNK
     Route: 065
     Dates: start: 20220709, end: 20220714
  27. GRANULOCYTE COLONY-STIMULATING FACTOR NOS [Concomitant]
     Active Substance: GRANULOCYTE COLONY-STIMULATING FACTOR NOS
     Indication: Product used for unknown indication
     Dosage: UNK
     Route: 065
     Dates: start: 20220509, end: 20220705
  28. ONDANSETRON HYDROCHLORIDE [Concomitant]
     Active Substance: ONDANSETRON HYDROCHLORIDE
     Indication: Product used for unknown indication
     Dosage: UNK
     Route: 065
     Dates: start: 20220628, end: 20220720
  29. OMEPRAZOLE SODIUM [Concomitant]
     Active Substance: OMEPRAZOLE SODIUM
     Indication: Product used for unknown indication
     Dosage: UNK
     Route: 065
     Dates: start: 20220628, end: 20220629
  30. VITAMIN B12 [Concomitant]
     Active Substance: CYANOCOBALAMIN
     Indication: Product used for unknown indication
     Dosage: UNK
     Route: 065
     Dates: start: 20220628, end: 20220628

REACTIONS (5)
  - Platelet count decreased [Recovered/Resolved]
  - Platelet count decreased [Recovered/Resolved]
  - Pneumonia [Not Recovered/Not Resolved]
  - Leukopenia [Recovered/Resolved]
  - Febrile neutropenia [Recovered/Resolved]

NARRATIVE: CASE EVENT DATE: 20220712
